FAERS Safety Report 6088539-7 (Version None)
Quarter: 2009Q1

REPORT INFORMATION
  Report Type: 
  Country: None (occurrence: None)
  Receive Date: 20090220
  Receipt Date: 20090220
  Transmission Date: 20090719
  Serious: Yes (Hospitalization)
  Sender: FDA-Public Use
  Company Number: None

PATIENT
  Age: 48 Year
  Sex: Female
  Weight: 102.0593 kg

DRUGS (1)
  1. LYRICA [Suspect]
     Indication: FIBROMYALGIA
     Dosage: 1 CAP 2X DAILY PO
     Route: 048

REACTIONS (6)
  - APHASIA [None]
  - DRUG HYPERSENSITIVITY [None]
  - EYE PAIN [None]
  - FACIAL PALSY [None]
  - HEADACHE [None]
  - PARAESTHESIA [None]
